FAERS Safety Report 25697496 (Version 1)
Quarter: 2025Q3

REPORT INFORMATION
  Report Type: Spontaneous
  Country: RU (occurrence: RU)
  Receive Date: 20250818
  Receipt Date: 20250818
  Transmission Date: 20251020
  Serious: Yes (Other)
  Sender: ABBVIE
  Company Number: RU-RICHTER-2025-GR-009555

PATIENT
  Age: 23 Year
  Sex: Male
  Weight: 94 kg

DRUGS (2)
  1. CARIPRAZINE [Suspect]
     Active Substance: CARIPRAZINE
     Indication: Schizophrenia
     Route: 048
     Dates: start: 20230606, end: 20241204
  2. CARIPRAZINE [Suspect]
     Active Substance: CARIPRAZINE
     Indication: Schizophrenia
     Route: 048
     Dates: start: 20250611

REACTIONS (1)
  - Abnormal weight gain [Recovered/Resolved]

NARRATIVE: CASE EVENT DATE: 20240601
